FAERS Safety Report 11349851 (Version 1)
Quarter: 2015Q3

REPORT INFORMATION
  Report Type: Spontaneous
  Country: GB (occurrence: GB)
  Receive Date: 20150807
  Receipt Date: 20150807
  Transmission Date: 20151125
  Serious: Yes (Other)
  Sender: FDA-Public Use
  Company Number: GB-MYLANLABS-2015M1026775

PATIENT

DRUGS (2)
  1. EPINEPHRINE. [Suspect]
     Active Substance: EPINEPHRINE
     Indication: PRODUCT USED FOR UNKNOWN INDICATION
  2. DEPO-MEDRONE [Suspect]
     Active Substance: METHYLPREDNISOLONE
     Indication: ARTHRALGIA
     Dosage: UNK
     Route: 030
     Dates: start: 20150307, end: 20150307

REACTIONS (3)
  - Circulatory collapse [Unknown]
  - Confusional state [Unknown]
  - Anxiety [Unknown]

NARRATIVE: CASE EVENT DATE: 20120110
